FAERS Safety Report 23980869 (Version 3)
Quarter: 2024Q3

REPORT INFORMATION
  Report Type: Spontaneous
  Country: EE (occurrence: EE)
  Receive Date: 20240617
  Receipt Date: 20240725
  Transmission Date: 20241017
  Serious: Yes (Other)
  Sender: AMGEN
  Company Number: EE-ABBVIE-5780423

PATIENT
  Sex: Female
  Weight: 73 kg

DRUGS (2)
  1. ADALIMUMAB [Suspect]
     Active Substance: ADALIMUMAB\ISOPROPYL ALCOHOL
     Indication: Crohn^s disease
     Dosage: UNK
     Route: 058
     Dates: start: 2019, end: 2020
  2. ENTYVIO [Suspect]
     Active Substance: VEDOLIZUMAB
     Indication: Crohn^s disease
     Dosage: UNK
     Route: 065
     Dates: start: 202104, end: 202401

REACTIONS (8)
  - Chronic kidney disease [Unknown]
  - Abortion spontaneous [Unknown]
  - Crohn^s disease [Unknown]
  - Gastric ulcer [Unknown]
  - Tubulointerstitial nephritis [Unknown]
  - Maternal exposure during pregnancy [Unknown]
  - Depression [Unknown]
  - Drug ineffective [Unknown]

NARRATIVE: CASE EVENT DATE: 20200101
